FAERS Safety Report 21327695 (Version 2)
Quarter: 2023Q1

REPORT INFORMATION
  Report Type: Spontaneous
  Country: CA (occurrence: CA)
  Receive Date: 20220913
  Receipt Date: 20230220
  Transmission Date: 20230418
  Serious: Yes (Hospitalization, Other)
  Sender: FDA-Public Use
  Company Number: CA-SAMSUNG BIOEPIS-SB-2022-22513

PATIENT
  Age: 44 Year
  Sex: Female
  Weight: 66 kg

DRUGS (2)
  1. INFLIXIMAB [Suspect]
     Active Substance: INFLIXIMAB
     Indication: Crohn^s disease
     Route: 042
  2. PREDNISONE [Concomitant]
     Active Substance: PREDNISONE
     Indication: Product used for unknown indication
     Dosage: UNKNOWN
     Route: 065

REACTIONS (10)
  - COVID-19 [Unknown]
  - Condition aggravated [Unknown]
  - Fistula [Unknown]
  - Iron deficiency anaemia [Unknown]
  - Seborrhoeic dermatitis [Unknown]
  - Aphthous ulcer [Unknown]
  - Arthralgia [Unknown]
  - Asthenia [Unknown]
  - Drug ineffective [Unknown]
  - Off label use [Unknown]
